FAERS Safety Report 8281155-8 (Version None)
Quarter: 2012Q2

REPORT INFORMATION
  Report Type: 
  Country: None (occurrence: None)
  Receive Date: 20120413
  Receipt Date: 20120403
  Transmission Date: 20120825
  Serious: No
  Sender: FDA-Public Use
  Company Number: US-BIOGENIDEC-2011BI016325

PATIENT
  Sex: Female

DRUGS (2)
  1. TYSABRI [Suspect]
     Indication: MULTIPLE SCLEROSIS
     Route: 042
     Dates: start: 20091016
  2. AVONEX [Concomitant]
     Indication: MULTIPLE SCLEROSIS
     Route: 042

REACTIONS (9)
  - BALANCE DISORDER [None]
  - FALL [None]
  - COORDINATION ABNORMAL [None]
  - FEELING HOT [None]
  - DRUG INEFFECTIVE [None]
  - MOBILITY DECREASED [None]
  - PAIN IN EXTREMITY [None]
  - VISUAL IMPAIRMENT [None]
  - MULTIPLE SCLEROSIS [None]
